FAERS Safety Report 8780674 (Version 1)
Quarter: 2012Q4

REPORT INFORMATION
  Report Type: Report from Study
  Country: US (occurrence: US)
  Receive Date: 20120913
  Receipt Date: 20120913
  Transmission Date: 20130627
  Serious: No
  Sender: FDA-Public Use
  Company Number: US-VERTEX PHARMACEUTICAL INC.-AE-2012-008409

PATIENT
  Age: 62 Year
  Sex: Male
  Weight: 88.64 kg

DRUGS (14)
  1. INCIVEK [Suspect]
     Indication: HEPATITIS C
     Route: 048
  2. PEGASYS [Concomitant]
     Indication: HEPATITIS C
  3. RIBAPAK [Concomitant]
     Indication: HEPATITIS C
  4. VITAMIN C [Concomitant]
  5. VITAMIN E [Concomitant]
  6. SELENIMIN [Concomitant]
  7. MILK THISTLE [Concomitant]
  8. CO ENZYME Q [Concomitant]
  9. FLAX SEED OIL [Concomitant]
  10. GLUCOSAMINE [Concomitant]
  11. FISH OIL [Concomitant]
  12. PROZAC [Concomitant]
  13. GABAPENTIN [Concomitant]
  14. IBUPROFEN [Concomitant]

REACTIONS (5)
  - Depression [Unknown]
  - Influenza like illness [Unknown]
  - Hangover [Unknown]
  - Anorectal discomfort [Unknown]
  - Anal pruritus [Unknown]
